FAERS Safety Report 8968295 (Version 1)
Quarter: 2012Q4

REPORT INFORMATION
  Report Type: 
  Country: IL (occurrence: IL)
  Receive Date: 20121218
  Receipt Date: 20121218
  Transmission Date: 20130627
  Serious: Yes (Life-Threatening)
  Sender: FDA-Public Use
  Company Number: IL-SANOFI-AVENTIS-2012SA090149

PATIENT
  Age: 70 Year
  Sex: Female

DRUGS (6)
  1. LANTUS [Suspect]
     Indication: TYPE 2 DIABETES MELLITUS
     Route: 058
  2. APIDRA [Concomitant]
     Indication: TYPE II DIABETES MELLITUS
     Dosage: 12-15 IU
     Route: 058
  3. METFORMIN [Concomitant]
     Indication: TYPE II DIABETES MELLITUS
  4. TRITACE [Concomitant]
     Indication: HYPERTENSION
  5. ASPIRIN [Concomitant]
     Indication: ISCHEMIC HEART DISEASE
  6. PLAVIX [Concomitant]
     Indication: ISCHEMIC HEART DISEASE

REACTIONS (4)
  - Hypoglycaemia [Recovered/Resolved]
  - Loss of consciousness [Recovered/Resolved]
  - Fall [Unknown]
  - Limb injury [Recovered/Resolved]
